FAERS Safety Report 11962946 (Version 1)
Quarter: 2016Q1

REPORT INFORMATION
  Report Type: Report from Study
  Country: CA (occurrence: CA)
  Receive Date: 20160126
  Receipt Date: 20160126
  Transmission Date: 20160526
  Serious: Yes (Other)
  Sender: FDA-Public Use
  Company Number: CA-ROCHE-1700536

PATIENT
  Age: 62 Year
  Sex: Female

DRUGS (7)
  1. ARAVA [Concomitant]
     Active Substance: LEFLUNOMIDE
  2. METHYLPREDNISOLONE. [Concomitant]
     Active Substance: METHYLPREDNISOLONE
     Route: 042
     Dates: start: 20150616
  3. ACETAMINOPHEN. [Concomitant]
     Active Substance: ACETAMINOPHEN
     Route: 048
     Dates: start: 20150616
  4. SULFASALAZINE. [Concomitant]
     Active Substance: SULFASALAZINE
  5. RITUXAN [Suspect]
     Active Substance: RITUXIMAB
     Indication: RHEUMATOID ARTHRITIS
     Dosage: FREQUENCY:  DAY 1 AND DAY 15
     Route: 042
     Dates: start: 20150616
  6. DIPHENHYDRAMINE. [Concomitant]
     Active Substance: DIPHENHYDRAMINE
     Route: 048
     Dates: start: 20150616
  7. HYDROXYCHLOROQUINE [Concomitant]
     Active Substance: HYDROXYCHLOROQUINE

REACTIONS (3)
  - Skin ulcer [Not Recovered/Not Resolved]
  - Viral infection [Unknown]
  - Rash [Unknown]

NARRATIVE: CASE EVENT DATE: 201512
